FAERS Safety Report 9273619 (Version 2)
Quarter: 2013Q2

REPORT INFORMATION
  Report Type: Spontaneous
  Country: JP (occurrence: JP)
  Receive Date: 20130506
  Receipt Date: 20130522
  Transmission Date: 20140414
  Serious: Yes (Other)
  Sender: FDA-Public Use
  Company Number: JP-009507513-1305JPN000184

PATIENT
  Sex: Male

DRUGS (2)
  1. GASTER [Suspect]
     Dosage: 20 MG, DAILY
     Route: 048
  2. MEVALOTIN [Concomitant]
     Route: 048

REACTIONS (1)
  - Rhabdomyolysis [Recovered/Resolved]
